FAERS Safety Report 21773367 (Version 2)
Quarter: 2023Q1

REPORT INFORMATION
  Report Type: Report from Study
  Country: US (occurrence: US)
  Receive Date: 20221223
  Receipt Date: 20230322
  Transmission Date: 20230417
  Serious: Yes (Death, Life-Threatening, Other)
  Sender: FDA-Public Use
  Company Number: US-GILEAD-2022-0601036

PATIENT
  Age: 35 Year
  Sex: Male
  Weight: 47 kg

DRUGS (14)
  1. LENACAPAVIR [Suspect]
     Active Substance: LENACAPAVIR
     Indication: HIV infection
     Dosage: 600 MG, DAILY X2 DAYS
     Route: 048
     Dates: start: 20220921, end: 20220922
  2. LENACAPAVIR [Suspect]
     Active Substance: LENACAPAVIR
     Dosage: 300 MG, DAY 8
     Route: 048
     Dates: start: 20220928
  3. LENACAPAVIR [Suspect]
     Active Substance: LENACAPAVIR
     Dosage: 927 MG
     Route: 058
     Dates: start: 20221005
  4. AMINO ACIDS\CARBOHYDRATES\MINERALS\VITAMINS [Concomitant]
     Active Substance: AMINO ACIDS\CARBOHYDRATES\MINERALS\VITAMINS
  5. CABOTEGRAVIR\RILPIVIRINE [Concomitant]
     Active Substance: CABOTEGRAVIR\RILPIVIRINE
     Indication: HIV infection
     Dosage: UNK
     Dates: start: 20220921, end: 20221029
  6. ENFUVIRTIDE [Concomitant]
     Active Substance: ENFUVIRTIDE
     Indication: HIV infection
     Dosage: UNK
     Dates: start: 20220921, end: 20221029
  7. IBALIZUMAB [Concomitant]
     Active Substance: IBALIZUMAB
     Indication: HIV infection
     Dosage: UNK
     Dates: start: 20220927, end: 20221029
  8. VORICONAZOLE [Concomitant]
     Active Substance: VORICONAZOLE
     Indication: Aspergillus infection
  9. OCTREOTIDE [Concomitant]
     Active Substance: OCTREOTIDE
     Indication: Cryptosporidiosis infection
  10. NITAZOXANIDE [Concomitant]
     Active Substance: NITAZOXANIDE
     Indication: Cryptosporidiosis infection
  11. VANCOMYCIN [Concomitant]
     Active Substance: VANCOMYCIN
     Indication: Pneumonia
  12. ZERBAXA [Concomitant]
     Active Substance: CEFTOLOZANE SULFATE\TAZOBACTAM SODIUM
     Indication: Pneumonia
  13. BACTRIM [Concomitant]
     Active Substance: SULFAMETHOXAZOLE\TRIMETHOPRIM
     Indication: Antifungal prophylaxis
  14. GANCICLOVIR [Concomitant]
     Active Substance: GANCICLOVIR
     Indication: Cytomegalovirus chorioretinitis

REACTIONS (5)
  - Immune reconstitution inflammatory syndrome [Not Recovered/Not Resolved]
  - Lymphoma [Fatal]
  - Blood HIV RNA increased [Not Recovered/Not Resolved]
  - Tumour lysis syndrome [Not Recovered/Not Resolved]
  - Drug ineffective [Not Recovered/Not Resolved]

NARRATIVE: CASE EVENT DATE: 20221006
